FAERS Safety Report 13328730 (Version 1)
Quarter: 2017Q1

REPORT INFORMATION
  Report Type: Spontaneous
  Country: US (occurrence: US)
  Receive Date: 20170311
  Receipt Date: 20170311
  Transmission Date: 20170428
  Serious: Yes (Other)
  Sender: FDA-Public Use
  Company Number: None

PATIENT
  Age: 30 Year
  Sex: Female
  Weight: 50.4 kg

DRUGS (3)
  1. INDOMETHACIN. [Suspect]
     Active Substance: INDOMETHACIN
     Indication: MIGRAINE
     Route: 048
     Dates: start: 20170308, end: 20170310
  2. LAMOTRIGINE. [Concomitant]
     Active Substance: LAMOTRIGINE
  3. AMITRIPTYLINE HCL [Concomitant]
     Active Substance: AMITRIPTYLINE

REACTIONS (6)
  - Mood swings [None]
  - Gastric disorder [None]
  - Anxiety [None]
  - Anger [None]
  - Fatigue [None]
  - Cold sweat [None]

NARRATIVE: CASE EVENT DATE: 20170310
